FAERS Safety Report 13024191 (Version 3)
Quarter: 2017Q2

REPORT INFORMATION
  Report Type: Spontaneous
  Country: BR (occurrence: BR)
  Receive Date: 20161213
  Receipt Date: 20170531
  Transmission Date: 20170830
  Serious: Yes (Other)
  Sender: FDA-Public Use
  Company Number: BR-JNJFOC-20160704408

PATIENT
  Sex: Male
  Weight: 75 kg

DRUGS (9)
  1. HALDOL [Suspect]
     Active Substance: HALOPERIDOL
     Indication: NERVOUSNESS
     Route: 048
  2. HALDOL [Suspect]
     Active Substance: HALOPERIDOL
     Indication: SCHIZOPHRENIA
     Route: 048
  3. LONGACTIL [Concomitant]
     Active Substance: CHLORPROMAZINE HYDROCHLORIDE
     Indication: PRODUCT USED FOR UNKNOWN INDICATION
     Route: 065
  4. HALDOL [Suspect]
     Active Substance: HALOPERIDOL
     Indication: DELIRIUM
     Dosage: 35 DROPS
     Route: 048
  5. HALDOL [Suspect]
     Active Substance: HALOPERIDOL
     Indication: DELIRIUM
     Route: 048
  6. HALDOL [Suspect]
     Active Substance: HALOPERIDOL
     Indication: NERVOUSNESS
     Dosage: 35 DROPS
     Route: 048
  7. HALDOL [Suspect]
     Active Substance: HALOPERIDOL
     Indication: FEELING ABNORMAL
     Route: 048
  8. HALDOL [Suspect]
     Active Substance: HALOPERIDOL
     Indication: FEELING ABNORMAL
     Dosage: 35 DROPS
     Route: 048
  9. HALDOL [Suspect]
     Active Substance: HALOPERIDOL
     Indication: SCHIZOPHRENIA
     Dosage: 35 DROPS
     Route: 048

REACTIONS (14)
  - Product packaging issue [Unknown]
  - Drug dose omission [Unknown]
  - Tachycardia [Unknown]
  - Product use in unapproved indication [Unknown]
  - Weight increased [Unknown]
  - Photosensitivity reaction [Unknown]
  - Drug ineffective for unapproved indication [Unknown]
  - Abdominal distension [Unknown]
  - Underdose [Unknown]
  - Hypersensitivity [Unknown]
  - Inappropriate schedule of drug administration [Unknown]
  - Dyspnoea [Unknown]
  - Dry mouth [Unknown]
  - Dry throat [Unknown]
